FAERS Safety Report 10206254 (Version 1)
Quarter: 2014Q2

REPORT INFORMATION
  Report Type: Spontaneous
  Country: US (occurrence: None)
  Receive Date: 20140527
  Receipt Date: 20140527
  Transmission Date: 20141212
  Serious: Yes (Hospitalization)
  Sender: FDA-Public Use
  Company Number: None

PATIENT
  Age: 72 Year
  Sex: Male
  Weight: 75 kg

DRUGS (2)
  1. CARBOPLATIN [Suspect]
  2. TAXOL [Suspect]

REACTIONS (14)
  - Dehydration [None]
  - Nausea [None]
  - Vomiting [None]
  - Confusional state [None]
  - Tremor [None]
  - Pyrexia [None]
  - Tachycardia [None]
  - Candida infection [None]
  - Breakthrough pain [None]
  - Oesophagitis [None]
  - Radiation injury [None]
  - Fatigue [None]
  - Infection [None]
  - Bacterial test positive [None]
